FAERS Safety Report 9970148 (Version 3)
Quarter: 2014Q1

REPORT INFORMATION
  Report Type: Spontaneous
  Country: GB (occurrence: GB)
  Receive Date: 20140306
  Receipt Date: 20140325
  Transmission Date: 20141002
  Serious: Yes (Hospitalization, Other)
  Sender: FDA-Public Use
  Company Number: GB-ROCHE-1347432

PATIENT
  Age: 76 Year
  Sex: Male

DRUGS (13)
  1. MABTHERA [Suspect]
     Indication: VASCULITIS
     Route: 042
     Dates: start: 201204
  2. MABTHERA [Suspect]
     Dosage: SECOND INFUSION
     Route: 042
     Dates: start: 20131125, end: 20131210
  3. RAMIPRIL [Concomitant]
  4. PREDNISOLONE [Concomitant]
     Route: 048
  5. WARFARIN [Concomitant]
  6. TIOTROPIUM BROMIDE [Concomitant]
     Route: 065
  7. TAMSULOSIN [Concomitant]
     Route: 065
  8. PANTOPRAZOLE [Concomitant]
     Route: 065
  9. FUROSEMIDE [Concomitant]
     Dosage: HALF TABLET
     Route: 048
  10. FLECAINIDE [Concomitant]
     Route: 065
  11. BISOPROLOL [Concomitant]
     Route: 065
  12. ADCAL-D3 [Concomitant]
     Dosage: 750 MG/200 CAPLET
     Route: 065
  13. RAMIPRIL [Concomitant]
     Route: 048

REACTIONS (24)
  - Facial pain [Unknown]
  - Migraine [Unknown]
  - Vasculitis [Unknown]
  - Abdominal pain [Unknown]
  - Vasculitis [Unknown]
  - Visual impairment [Unknown]
  - Diarrhoea [Unknown]
  - Chest pain [Unknown]
  - Facial pain [Unknown]
  - Headache [Unknown]
  - Muscular weakness [Unknown]
  - Infection [Unknown]
  - Feeling hot [Unknown]
  - Malaise [Unknown]
  - Pain in extremity [Unknown]
  - Rhinorrhoea [Unknown]
  - Cough [Unknown]
  - Arthralgia [Unknown]
  - Vasculitis [Unknown]
  - Lung disorder [Unknown]
  - Eye pain [Unknown]
  - Ear discomfort [Unknown]
  - Visual impairment [Unknown]
  - Visual field defect [Unknown]
